FAERS Safety Report 25323716 (Version 1)
Quarter: 2025Q2

REPORT INFORMATION
  Report Type: Spontaneous
  Country: US (occurrence: US)
  Receive Date: 20250516
  Receipt Date: 20250516
  Transmission Date: 20250717
  Serious: Yes (Hospitalization)
  Sender: MYLAN
  Company Number: US-MYLANLABS-2025M1041142

PATIENT
  Sex: Male

DRUGS (36)
  1. DIVALPROEX SODIUM [Suspect]
     Active Substance: DIVALPROEX SODIUM
     Indication: Bipolar I disorder
  2. DIVALPROEX SODIUM [Suspect]
     Active Substance: DIVALPROEX SODIUM
     Route: 065
  3. DIVALPROEX SODIUM [Suspect]
     Active Substance: DIVALPROEX SODIUM
     Route: 065
  4. DIVALPROEX SODIUM [Suspect]
     Active Substance: DIVALPROEX SODIUM
  5. ZIPRASIDONE [Suspect]
     Active Substance: ZIPRASIDONE
     Indication: Bipolar I disorder
  6. ZIPRASIDONE [Suspect]
     Active Substance: ZIPRASIDONE
     Route: 065
  7. ZIPRASIDONE [Suspect]
     Active Substance: ZIPRASIDONE
     Route: 065
  8. ZIPRASIDONE [Suspect]
     Active Substance: ZIPRASIDONE
  9. PALIPERIDONE [Suspect]
     Active Substance: PALIPERIDONE
     Indication: Bipolar I disorder
  10. PALIPERIDONE [Suspect]
     Active Substance: PALIPERIDONE
     Route: 065
  11. PALIPERIDONE [Suspect]
     Active Substance: PALIPERIDONE
     Route: 065
  12. PALIPERIDONE [Suspect]
     Active Substance: PALIPERIDONE
  13. CLONAZEPAM [Suspect]
     Active Substance: CLONAZEPAM
     Indication: Bipolar I disorder
     Dosage: UNK, QD
  14. CLONAZEPAM [Suspect]
     Active Substance: CLONAZEPAM
     Dosage: UNK, QD
     Route: 065
  15. CLONAZEPAM [Suspect]
     Active Substance: CLONAZEPAM
     Dosage: UNK, QD
     Route: 065
  16. CLONAZEPAM [Suspect]
     Active Substance: CLONAZEPAM
     Dosage: UNK, QD
  17. RISPERIDONE [Suspect]
     Active Substance: RISPERIDONE
     Indication: Bipolar I disorder
  18. RISPERIDONE [Suspect]
     Active Substance: RISPERIDONE
     Route: 065
  19. RISPERIDONE [Suspect]
     Active Substance: RISPERIDONE
     Route: 065
  20. RISPERIDONE [Suspect]
     Active Substance: RISPERIDONE
  21. DIPHENHYDRAMINE [Suspect]
     Active Substance: DIPHENHYDRAMINE
     Indication: Bipolar I disorder
  22. DIPHENHYDRAMINE [Suspect]
     Active Substance: DIPHENHYDRAMINE
     Route: 065
  23. DIPHENHYDRAMINE [Suspect]
     Active Substance: DIPHENHYDRAMINE
     Route: 065
  24. DIPHENHYDRAMINE [Suspect]
     Active Substance: DIPHENHYDRAMINE
  25. LORAZEPAM [Suspect]
     Active Substance: LORAZEPAM
     Indication: Bipolar I disorder
  26. LORAZEPAM [Suspect]
     Active Substance: LORAZEPAM
     Route: 065
  27. LORAZEPAM [Suspect]
     Active Substance: LORAZEPAM
     Route: 065
  28. LORAZEPAM [Suspect]
     Active Substance: LORAZEPAM
  29. OLANZAPINE [Suspect]
     Active Substance: OLANZAPINE
     Indication: Bipolar I disorder
  30. OLANZAPINE [Suspect]
     Active Substance: OLANZAPINE
  31. OLANZAPINE [Suspect]
     Active Substance: OLANZAPINE
     Route: 065
  32. OLANZAPINE [Suspect]
     Active Substance: OLANZAPINE
     Route: 065
  33. OLANZAPINE [Suspect]
     Active Substance: OLANZAPINE
  34. OLANZAPINE [Suspect]
     Active Substance: OLANZAPINE
  35. OLANZAPINE [Suspect]
     Active Substance: OLANZAPINE
     Route: 065
  36. OLANZAPINE [Suspect]
     Active Substance: OLANZAPINE
     Route: 065

REACTIONS (2)
  - Oedema peripheral [Recovered/Resolved]
  - Drug ineffective [Unknown]
